FAERS Safety Report 5199478-8 (Version None)
Quarter: 2006Q4

REPORT INFORMATION
  Report Type: 
  Country: None (occurrence: None)
  Receive Date: 20061229
  Receipt Date: 20061221
  Transmission Date: 20070319
  Serious: Yes (Hospitalization)
  Sender: FDA-Public Use
  Company Number: FABR-11748

PATIENT
  Age: 35 Year
  Sex: Female
  Weight: 106.5953 kg

DRUGS (3)
  1. FABRAZYME [Suspect]
     Indication: FABRY'S DISEASE
     Dosage: 110 MG Q2WKS IV
     Route: 042
     Dates: start: 20040101
  2. FABRAZYME [Suspect]
  3. ACETAMINOPHEN [Concomitant]

REACTIONS (1)
  - BREAST CANCER FEMALE [None]
